FAERS Safety Report 6789093-4 (Version None)
Quarter: 2010Q2

REPORT INFORMATION
  Report Type: 
  Country: None (occurrence: None)
  Receive Date: 20100623
  Receipt Date: 20081104
  Transmission Date: 20101027
  Serious: Yes (Other)
  Sender: FDA-Public Use
  Company Number: US-PFIZER INC-2008033500

PATIENT
  Sex: Female

DRUGS (8)
  1. CADUET [Suspect]
     Indication: HYPERTENSION
     Dosage: 5 MG/10 MG
  2. CADUET [Suspect]
     Indication: HYPERLIPIDAEMIA
  3. SYNTHROID [Concomitant]
     Indication: HYPOTHYROIDISM
  4. PAXIL [Concomitant]
     Indication: DEPRESSION
  5. PAXIL [Concomitant]
     Indication: ANXIETY
  6. AMBIEN [Concomitant]
     Dosage: AT BEDTIME
  7. ASPIRIN [Concomitant]
  8. FOSAMAX [Concomitant]
     Indication: OSTEOPENIA
     Route: 048

REACTIONS (5)
  - ARTICULAR DISC DISORDER [None]
  - BREAST PAIN [None]
  - CHEST PAIN [None]
  - DYSPNOEA [None]
  - HIATUS HERNIA [None]
